FAERS Safety Report 9726006 (Version 2)
Quarter: 2013Q4

REPORT INFORMATION
  Report Type: Report from Study
  Country: AU (occurrence: AU)
  Receive Date: 20131203
  Receipt Date: 20131212
  Transmission Date: 20140711
  Serious: Yes (Other)
  Sender: FDA-Public Use
  Company Number: AU-INCYTE CORPORATION-2013IN002820

PATIENT
  Age: 59 Year
  Sex: Female
  Weight: 78.9 kg

DRUGS (5)
  1. INC424 [Suspect]
     Indication: MYELOFIBROSIS
     Dosage: 15 MG, BID
     Route: 048
     Dates: start: 201302
  2. NIZATIDINE [Concomitant]
  3. PRISTIQ [Concomitant]
  4. ALLOPURINOL [Concomitant]
  5. ALPRAZOLAM [Concomitant]

REACTIONS (1)
  - Systolic hypertension [Recovering/Resolving]
